FAERS Safety Report 9170769 (Version 1)
Quarter: 2013Q1

REPORT INFORMATION
  Report Type: Spontaneous
  Country: CN (occurrence: None)
  Receive Date: 20130311
  Receipt Date: 20130311
  Transmission Date: 20140127
  Serious: Yes (Hospitalization)
  Sender: FDA-Public Use
  Company Number: KR-JNJFOC-2011038526

PATIENT
  Age: 66 Year
  Sex: Female
  Weight: 67 kg

DRUGS (2)
  1. DACOGEN (DECITABINE) (LYOPHILIZED POWDER) [Suspect]
     Indication: MYELODYSPLASTIC SYNDROME
     Route: 042
     Dates: start: 20110204, end: 20110208
  2. UNSPECIFIED CONSTIPATION MEDICATIONS (LAXATIVES) [Concomitant]

REACTIONS (4)
  - Decreased appetite [None]
  - Adrenal insufficiency [None]
  - Pyrexia [None]
  - Urinary tract infection [None]
